FAERS Safety Report 14564463 (Version 2)
Quarter: 2018Q1

REPORT INFORMATION
  Report Type: Report from Study
  Country: FR (occurrence: FR)
  Receive Date: 20180222
  Receipt Date: 20180308
  Transmission Date: 20180509
  Serious: Yes (Hospitalization)
  Sender: FDA-Public Use
  Company Number: FR-GILEAD-2018-0322022

PATIENT
  Sex: Male

DRUGS (5)
  1. PYOSTACINE [Concomitant]
     Active Substance: PRISTINAMYCIN
  2. PARACETAMOL [Concomitant]
     Active Substance: ACETAMINOPHEN
  3. IDELALISIB [Suspect]
     Active Substance: IDELALISIB
     Indication: CHRONIC LYMPHOCYTIC LEUKAEMIA
     Dosage: 150 MG, BID
     Route: 048
     Dates: start: 20141103, end: 20150312
  4. TAVANIC [Concomitant]
     Active Substance: LEVOFLOXACIN
  5. ROCEPHINE [Concomitant]
     Active Substance: CEFTRIAXONE SODIUM

REACTIONS (1)
  - Lung disorder [Recovered/Resolved]

NARRATIVE: CASE EVENT DATE: 20150213
